FAERS Safety Report 7815643-2 (Version None)
Quarter: 2011Q4

REPORT INFORMATION
  Report Type: 
  Country: None (occurrence: None)
  Receive Date: 20111014
  Receipt Date: 20111007
  Transmission Date: 20120403
  Serious: Yes (Hospitalization)
  Sender: FDA-Public Use
  Company Number: US-MDL-2011ML000130

PATIENT
  Age: 16 Year
  Sex: Female

DRUGS (1)
  1. BUPRENORPHINE [Suspect]

REACTIONS (1)
  - INTENTIONAL DRUG MISUSE [None]
